FAERS Safety Report 8524380-0 (Version None)
Quarter: 2012Q3

REPORT INFORMATION
  Report Type: 
  Country: None (occurrence: None)
  Receive Date: 20120716
  Receipt Date: 20120716
  Transmission Date: 20120928
  Serious: Yes (Hospitalization)
  Sender: FDA-Public Use
  Company Number: None

PATIENT
  Age: 66 Year
  Sex: Male
  Weight: 86.8 kg

DRUGS (1)
  1. HYDROCHLOROTHIAZIDE [Suspect]
     Indication: HYPERTENSION
     Dosage: 25 MG EVERY DAY PO
     Route: 048
     Dates: start: 20120228, end: 20120313

REACTIONS (5)
  - VOMITING [None]
  - MUSCLE SPASMS [None]
  - HEADACHE [None]
  - NAUSEA [None]
  - HYPONATRAEMIA [None]
